FAERS Safety Report 6283275-6 (Version None)
Quarter: 2009Q3

REPORT INFORMATION
  Report Type: 
  Country: None (occurrence: None)
  Receive Date: 20090724
  Receipt Date: 20090202
  Transmission Date: 20100115
  Serious: No
  Sender: FDA-Public Use
  Company Number: US-AMGEN-KDL328887

PATIENT
  Sex: Female

DRUGS (3)
  1. EPOGEN [Suspect]
     Indication: DIALYSIS
     Dates: start: 20080404, end: 20080509
  2. VENOFER [Concomitant]
  3. HECTORAL [Concomitant]

REACTIONS (2)
  - ABDOMINAL DISCOMFORT [None]
  - HYPERSENSITIVITY [None]
